FAERS Safety Report 8072588-3 (Version None)
Quarter: 2012Q1

REPORT INFORMATION
  Report Type: 
  Country: None (occurrence: None)
  Receive Date: 20120126
  Receipt Date: 20120120
  Transmission Date: 20120608
  Serious: Yes (Hospitalization)
  Sender: FDA-Public Use
  Company Number: AT-SANOFI-AVENTIS-2012SA005008

PATIENT
  Age: 65 Year
  Sex: Female
  Weight: 56 kg

DRUGS (6)
  1. ELOXATIN [Suspect]
     Route: 041
     Dates: start: 20111102, end: 20111102
  2. ELOXATIN [Suspect]
     Indication: GASTRIC CANCER
     Route: 041
     Dates: start: 20110824, end: 20110824
  3. IRINOTECAN HCL [Suspect]
     Route: 051
     Dates: start: 20111102, end: 20111102
  4. IRINOTECAN HCL [Suspect]
     Indication: GASTRIC CANCER
     Route: 051
     Dates: start: 20110824, end: 20110824
  5. AVASTIN [Suspect]
     Route: 051
     Dates: start: 20111102, end: 20111102
  6. AVASTIN [Suspect]
     Indication: GASTRIC CANCER
     Route: 051
     Dates: start: 20110824, end: 20110824

REACTIONS (1)
  - GASTRIC PERFORATION [None]
